FAERS Safety Report 6702870-0 (Version None)
Quarter: 2010Q2

REPORT INFORMATION
  Report Type: 
  Country: None (occurrence: None)
  Receive Date: 20100429
  Receipt Date: 20100420
  Transmission Date: 20101027
  Serious: Yes (Other)
  Sender: FDA-Public Use
  Company Number: LT-ABBOTT-10P-234-0639757-00

PATIENT
  Sex: Male

DRUGS (11)
  1. VALPROATE SODIUM [Suspect]
     Indication: EPILEPSY
     Route: 048
  2. VALPROATE SODIUM [Suspect]
     Route: 048
  3. CARBAMAZEPINE [Suspect]
     Indication: CONVULSION
  4. CARBAMAZEPINE [Suspect]
     Indication: STATUS EPILEPTICUS
  5. NITRAZEPAM [Suspect]
     Indication: CONVULSION
  6. NITRAZEPAM [Suspect]
     Indication: STATUS EPILEPTICUS
  7. LAMOTRIGINE [Suspect]
     Indication: CONVULSION
  8. LAMOTRIGINE [Suspect]
     Indication: STATUS EPILEPTICUS
  9. TOPIRAMATE [Suspect]
     Indication: CONVULSION
  10. POTASSIUM BROMIDE [Concomitant]
  11. DIAZEPAM [Concomitant]

REACTIONS (3)
  - CONVULSION [None]
  - DERMATITIS ALLERGIC [None]
  - HEPATIC ENZYME INCREASED [None]
